FAERS Safety Report 10438383 (Version 1)
Quarter: 2014Q3

REPORT INFORMATION
  Report Type: Spontaneous
  Country: US (occurrence: US)
  Receive Date: 20140908
  Receipt Date: 20140908
  Transmission Date: 20150326
  Serious: Yes (Other)
  Sender: FDA-Public Use
  Company Number: US-BRISTOL-MYERS SQUIBB COMPANY-19857457

PATIENT
  Age: 59 Year
  Sex: Male
  Weight: 123.81 kg

DRUGS (1)
  1. ABILIFY [Suspect]
     Active Substance: ARIPIPRAZOLE
     Dosage: ALSO TOOK 2MG

REACTIONS (3)
  - Muscle twitching [Unknown]
  - Atrial fibrillation [Unknown]
  - Wrong technique in drug usage process [Unknown]
